FAERS Safety Report 4768419-7 (Version None)
Quarter: 2005Q3

REPORT INFORMATION
  Report Type: 
  Country: None (occurrence: None)
  Receive Date: 20050914
  Receipt Date: 20050902
  Transmission Date: 20060218
  Serious: Yes (Other)
  Sender: FDA-Public Use
  Company Number: US-GLAXOSMITHKLINE-A0573010A

PATIENT
  Sex: Male

DRUGS (1)
  1. VIVARIN [Suspect]
     Route: 048

REACTIONS (2)
  - DEPENDENCE [None]
  - TINNITUS [None]
